FAERS Safety Report 9218880 (Version 1)
Quarter: 2013Q2

REPORT INFORMATION
  Report Type: Spontaneous
  Country: US (occurrence: None)
  Receive Date: 20130405
  Receipt Date: 20130405
  Transmission Date: 20140414
  Serious: Yes (Other)
  Sender: FDA-Public Use
  Company Number: None

PATIENT
  Age: 21 Year
  Sex: Female
  Weight: 56.7 kg

DRUGS (1)
  1. VYVANSE [Suspect]
     Indication: ATTENTION DEFICIT/HYPERACTIVITY DISORDER
     Route: 048
     Dates: start: 20130101, end: 20130403

REACTIONS (17)
  - Pain in extremity [None]
  - Musculoskeletal pain [None]
  - Drug effect decreased [None]
  - Hypoaesthesia [None]
  - Paraesthesia [None]
  - Muscle tightness [None]
  - Social phobia [None]
  - Paranoia [None]
  - Panic attack [None]
  - Sinus headache [None]
  - Insomnia [None]
  - Amnesia [None]
  - Dyspnoea [None]
  - Chest pain [None]
  - Vision blurred [None]
  - Agitation [None]
  - Product formulation issue [None]
